FAERS Safety Report 26067912 (Version 1)
Quarter: 2025Q4

REPORT INFORMATION
  Report Type: Spontaneous
  Country: GB (occurrence: GB)
  Receive Date: 20251120
  Receipt Date: 20251120
  Transmission Date: 20260117
  Serious: Yes (Hospitalization, Other)
  Sender: STRIDES
  Company Number: GB-STRIDES ARCOLAB LIMITED-2025SP014384

PATIENT
  Age: 45 Year
  Sex: Female

DRUGS (9)
  1. MYCOPHENOLATE MOFETIL [Suspect]
     Active Substance: MYCOPHENOLATE MOFETIL
     Indication: Autoimmune haemolytic anaemia
     Dosage: UNK
     Route: 065
     Dates: start: 2017
  2. AMOXICILLIN [Suspect]
     Active Substance: AMOXICILLIN
     Indication: Lower respiratory tract infection
     Dosage: UNK
     Route: 065
  3. DOXYCYCLINE [Suspect]
     Active Substance: DOXYCYCLINE
     Indication: Pelvic infection
     Dosage: UNK
     Route: 065
  4. NITROFURANTOIN [Suspect]
     Active Substance: NITROFURANTOIN
     Indication: Urinary tract infection
     Dosage: UNK
     Route: 065
  5. RITUXIMAB [Suspect]
     Active Substance: RITUXIMAB
     Indication: Autoimmune haemolytic anaemia
     Dosage: 375 MILLIGRAM/SQ. METER, ONCE A WEEK
     Route: 065
     Dates: start: 2017
  6. Measles mumps + rubella live attenuated (free [Concomitant]
     Indication: Measles immunisation
     Dosage: UNK
     Route: 065
     Dates: start: 1980, end: 1980
  7. Measles mumps + rubella live attenuated (free [Concomitant]
     Dosage: UNK
     Route: 065
     Dates: start: 2013, end: 2013
  8. Measles mumps + rubella live attenuated (free [Concomitant]
     Dosage: UNK
     Route: 065
     Dates: start: 2015, end: 2015
  9. MIRENA [Concomitant]
     Active Substance: LEVONORGESTREL
     Indication: Intrauterine contraception
     Dosage: UNK
     Route: 015

REACTIONS (4)
  - Haemophagocytic lymphohistiocytosis [Recovering/Resolving]
  - Measles [Recovering/Resolving]
  - Drug ineffective [Unknown]
  - Off label use [Unknown]
